FAERS Safety Report 4347203-2 (Version None)
Quarter: 2004Q1

REPORT INFORMATION
  Report Type: 
  Country: None (occurrence: None)
  Receive Date: 20040325
  Receipt Date: 20040202
  Transmission Date: 20041129
  Serious: No
  Sender: FDA-Public Use
  Company Number: USA031254826

PATIENT
  Age: 77 Year
  Sex: Female
  Weight: 50 kg

DRUGS (11)
  1. FORTEO [Suspect]
     Indication: OSTEOPOROSIS
     Dosage: 20 UG/DAY
     Dates: start: 20031114, end: 20031201
  2. REMERON [Concomitant]
  3. ATIVAN [Concomitant]
  4. ACETAMINOPHEN AND HYDROCODONE BITARTRATE [Concomitant]
  5. KLOR-CON [Concomitant]
  6. LASIX [Concomitant]
  7. XANAX [Concomitant]
  8. LEVOTHYROXINE [Concomitant]
  9. CALCIUM [Concomitant]
  10. BLACK COHOSH [Concomitant]
  11. PROTONIX [Concomitant]

REACTIONS (2)
  - CONFUSIONAL STATE [None]
  - VISION BLURRED [None]
